FAERS Safety Report 14831668 (Version 1)
Quarter: 2018Q2

REPORT INFORMATION
  Report Type: Spontaneous
  Country: US (occurrence: US)
  Receive Date: 20180501
  Receipt Date: 20180501
  Transmission Date: 20180711
  Serious: No
  Sender: FDA-Public Use
  Company Number: US-UNICHEM PHARMACEUTICALS (USA) INC-UCM201802-000034

PATIENT
  Age: 65 Year
  Sex: Female

DRUGS (3)
  1. METRONIDAZOLE 500 MG TABLETS [Suspect]
     Active Substance: METRONIDAZOLE
     Indication: BLASTOCYSTIS INFECTION
     Dates: start: 20180212
  2. VITAMINS [Concomitant]
     Active Substance: VITAMINS
  3. MINERALS [Concomitant]
     Active Substance: MINERALS

REACTIONS (2)
  - Dysgeusia [Not Recovered/Not Resolved]
  - Rash [Recovering/Resolving]
